FAERS Safety Report 15543694 (Version 1)
Quarter: 2018Q4

REPORT INFORMATION
  Report Type: Spontaneous
  Country: US (occurrence: US)
  Receive Date: 20181023
  Receipt Date: 20181023
  Transmission Date: 20190205
  Serious: Yes (Other)
  Sender: FDA-Public Use
  Company Number: US-GLAXOSMITHKLINE-US2018187566

PATIENT
  Sex: Male

DRUGS (1)
  1. ANORO ELLIPTA [Suspect]
     Active Substance: UMECLIDINIUM BROMIDE\VILANTEROL TRIFENATATE
     Indication: EMPHYSEMA
     Dosage: UNK UNK, U

REACTIONS (10)
  - Pain [Unknown]
  - Constipation [Unknown]
  - Pain in extremity [Unknown]
  - Chest discomfort [Unknown]
  - Bronchospasm [Unknown]
  - Eye disorder [Unknown]
  - Chest pain [Unknown]
  - Urinary retention [Unknown]
  - Blood pressure increased [Unknown]
  - Hyperventilation [Unknown]
